FAERS Safety Report 10071739 (Version 2)
Quarter: 2014Q2

REPORT INFORMATION
  Report Type: Spontaneous
  Country: US (occurrence: US)
  Receive Date: 20140411
  Receipt Date: 20140513
  Transmission Date: 20141212
  Serious: No
  Sender: FDA-Public Use
  Company Number: US-009507513-1404USA004962

PATIENT
  Age: 17 Year
  Sex: Female
  Weight: 88.89 kg

DRUGS (7)
  1. NEXPLANON [Suspect]
     Indication: CONTRACEPTION
     Dosage: 68 MG, 1 ROD INSERTED EVERY THREE YEARS
     Route: 059
     Dates: start: 20130822
  2. PRILOSEC [Concomitant]
     Dosage: UNK
     Route: 048
  3. REMERON [Concomitant]
     Dosage: UNK
     Route: 048
  4. TOPAMAX [Concomitant]
     Dosage: UNK
  5. PROZAC [Concomitant]
     Dosage: UNK
  6. COGENTIN [Concomitant]
     Dosage: UNK
  7. GEODON [Concomitant]
     Dosage: UNK

REACTIONS (3)
  - Breast induration [Unknown]
  - Unintended pregnancy [Unknown]
  - Abdominal pain upper [Unknown]
